FAERS Safety Report 9549902 (Version 4)
Quarter: 2013Q4

REPORT INFORMATION
  Report Type: Spontaneous
  Country: JP (occurrence: JP)
  Receive Date: 20130924
  Receipt Date: 20131101
  Transmission Date: 20140711
  Serious: Yes (Hospitalization)
  Sender: FDA-Public Use
  Company Number: JP-UCBSA-098113

PATIENT
  Age: 66 Year
  Sex: Female

DRUGS (14)
  1. CIMZIA [Suspect]
     Indication: RHEUMATOID ARTHRITIS
     Dosage: STRENGTH: 200 MG
     Route: 058
     Dates: start: 20130904, end: 20130904
  2. METHOTREXATE [Concomitant]
     Route: 048
  3. INFLIXIMAB [Concomitant]
  4. ETANERCEPT [Concomitant]
  5. TOCILIZUMAB [Concomitant]
     Dates: start: 2013, end: 2013
  6. TOCILIZUMAB [Concomitant]
     Dates: start: 201309
  7. PREDNISOLONE [Concomitant]
     Dates: start: 20031226
  8. HYPEN [Concomitant]
     Route: 048
     Dates: start: 20040724
  9. MERZULENE-S [Concomitant]
     Route: 048
     Dates: start: 20040724
  10. FOLIAMIN [Concomitant]
     Dosage: UNKNOWN
     Route: 048
     Dates: start: 20040724, end: 20130904
  11. SALAGEN [Concomitant]
     Dosage: DAILY DOSE: 2 DF
     Route: 048
     Dates: start: 20080304, end: 20130907
  12. BONOTEO [Concomitant]
     Dosage: UNKNOWN
     Route: 048
     Dates: start: 20100702, end: 20130907
  13. STYBLA [Concomitant]
     Route: 048
     Dates: start: 20120223, end: 20130907
  14. ALOSENN [Concomitant]
     Route: 048
     Dates: start: 20121205, end: 20130907

REACTIONS (3)
  - Pyrexia [Recovered/Resolved]
  - Headache [Recovered/Resolved]
  - Pyelonephritis [Recovered/Resolved]
